FAERS Safety Report 4677920-6 (Version None)
Quarter: 2005Q2

REPORT INFORMATION
  Report Type: 
  Country: None (occurrence: None)
  Receive Date: 20050527
  Receipt Date: 20050520
  Transmission Date: 20051028
  Serious: Yes (Death)
  Sender: FDA-Public Use
  Company Number: 2005-128450-NL

PATIENT
  Age: 75 Year
  Sex: Male

DRUGS (2)
  1. DANAPAROID SODIUM [Suspect]
     Route: 042
     Dates: start: 20040625, end: 20040630
  2. HEPARIN SODIUM [Suspect]
     Dosage: DF
     Route: 042
     Dates: end: 20040625

REACTIONS (3)
  - ANAPHYLACTIC SHOCK [None]
  - HAEMATOMA [None]
  - HEPARIN-INDUCED THROMBOCYTOPENIA [None]
